FAERS Safety Report 8226069-4 (Version None)
Quarter: 2012Q1

REPORT INFORMATION
  Report Type: 
  Country: None (occurrence: None)
  Receive Date: 20120319
  Receipt Date: 20120308
  Transmission Date: 20120608
  Serious: Yes (Other)
  Sender: FDA-Public Use
  Company Number: 216975

PATIENT
  Age: 13 Year
  Sex: Female

DRUGS (1)
  1. CALCIPOTRIENE AND BETAMETHASONE DIPROPIONATE [Suspect]
     Indication: PSORIASIS
     Dates: start: 20120217

REACTIONS (4)
  - ABORTION SPONTANEOUS [None]
  - OFF LABEL USE [None]
  - FOETAL DEATH [None]
  - MATERNAL EXPOSURE DURING PREGNANCY [None]
